FAERS Safety Report 10028731 (Version 2)
Quarter: 2014Q1

REPORT INFORMATION
  Report Type: Spontaneous
  Country: US (occurrence: US)
  Receive Date: 20140321
  Receipt Date: 20140321
  Transmission Date: 20141002
  Serious: Yes (Hospitalization, Disabling, Other)
  Sender: FDA-Public Use
  Company Number: US-009507513-0705USA02655

PATIENT
  Sex: Female
  Weight: 64.41 kg

DRUGS (5)
  1. FOSAMAX [Suspect]
     Indication: OSTEOPOROSIS
     Dosage: 70 MG, QW
     Route: 048
     Dates: start: 199803, end: 200605
  2. FOSAMAX [Suspect]
     Indication: SPINAL COMPRESSION FRACTURE
     Dosage: 10 MG, QD
     Route: 048
     Dates: start: 19991104, end: 20021006
  3. MORPHINE [Concomitant]
     Indication: SPINAL COMPRESSION FRACTURE
     Dates: start: 1998, end: 2006
  4. ZOLOFT [Concomitant]
     Indication: DEPRESSION
     Dates: start: 1998
  5. METICORTEN [Concomitant]
     Dosage: 10 MG, QD
     Dates: start: 19880101

REACTIONS (36)
  - Osteomyelitis [Recovering/Resolving]
  - Osteonecrosis of jaw [Recovering/Resolving]
  - Depression [Unknown]
  - Anxiety [Unknown]
  - Herpes zoster [Unknown]
  - Acute sinusitis [Unknown]
  - Lymphadenitis [Unknown]
  - Chondrocalcinosis pyrophosphate [Recovering/Resolving]
  - Oral herpes [Unknown]
  - Pharyngeal cyst [Unknown]
  - Rib fracture [Unknown]
  - Thoracic vertebral fracture [Recovering/Resolving]
  - Oesophageal candidiasis [Unknown]
  - Impaired gastric emptying [Unknown]
  - Rheumatoid arthritis [Not Recovered/Not Resolved]
  - Large intestine polyp [Unknown]
  - Hypertension [Unknown]
  - Bone disorder [Unknown]
  - Fracture [Unknown]
  - Fall [Unknown]
  - Foot deformity [Unknown]
  - Arthropathy [Unknown]
  - Spinal osteoarthritis [Unknown]
  - Osteopenia [Unknown]
  - Dry eye [Unknown]
  - Hypoaesthesia [Unknown]
  - Fatigue [Unknown]
  - Weight decreased [Unknown]
  - Hypoaesthesia [Unknown]
  - Paraesthesia [Unknown]
  - Dysphagia [Unknown]
  - Dyspepsia [Unknown]
  - Blood calcium increased [Unknown]
  - Arthropathy [Unknown]
  - Tendon disorder [Unknown]
  - Insomnia [Unknown]
